FAERS Safety Report 4357852-3 (Version None)
Quarter: 2004Q2

REPORT INFORMATION
  Report Type: 
  Country: None (occurrence: None)
  Receive Date: 20040510
  Receipt Date: 20040423
  Transmission Date: 20050107
  Serious: Yes (Other)
  Sender: FDA-Public Use
  Company Number: DSA_80628_2004

PATIENT
  Age: 48 Year
  Sex: Female
  Weight: 56.246 kg

DRUGS (5)
  1. XYREM [Suspect]
     Indication: FATIGUE
     Dosage: 6 G NIGHTLY PO
     Route: 048
     Dates: start: 20040401, end: 20040420
  2. XYREM [Suspect]
     Indication: FIBROMYALGIA
     Dosage: 6 G NIGHTLY PO
     Route: 048
     Dates: start: 20040401, end: 20040420
  3. XYREM [Suspect]
     Indication: PAIN
     Dosage: 6 G NIGHTLY PO
     Route: 048
     Dates: start: 20040401, end: 20040420
  4. XYREM [Suspect]
     Indication: POOR QUALITY SLEEP
     Dosage: 6 G NIGHTLY PO
     Route: 048
     Dates: start: 20040401, end: 20040420
  5. ULTRACET [Suspect]
     Dosage: 6 TAB QDAY PO
     Route: 048

REACTIONS (9)
  - ABDOMINAL PAIN [None]
  - DRUG WITHDRAWAL SYNDROME [None]
  - INITIAL INSOMNIA [None]
  - MEDICATION ERROR [None]
  - NAUSEA [None]
  - OVERDOSE [None]
  - PYREXIA [None]
  - TREMOR [None]
  - VOMITING [None]
